FAERS Safety Report 8235726-5 (Version None)
Quarter: 2012Q1

REPORT INFORMATION
  Report Type: 
  Country: None (occurrence: None)
  Receive Date: 20120326
  Receipt Date: 20120320
  Transmission Date: 20120608
  Serious: Yes (Other)
  Sender: FDA-Public Use
  Company Number: PHFR2011GB00800

PATIENT
  Sex: Female
  Weight: 75 kg

DRUGS (9)
  1. LITHIUM CARBONATE [Concomitant]
     Indication: SCHIZOPHRENIA
     Dosage: 800 MG/DAY
     Route: 048
     Dates: start: 20070101
  2. CLOZARIL [Suspect]
     Dosage: 400 MG/DAY
     Route: 048
     Dates: start: 20070101, end: 20110119
  3. HYOSCINE [Concomitant]
     Indication: DRY MOUTH
     Dosage: 300 UG/DAY
     Route: 048
     Dates: start: 20070101, end: 20110128
  4. VALPROATE SODIUM [Concomitant]
     Dosage: 1800 MG, UNK
     Route: 048
  5. CLOPIXOL [Concomitant]
     Route: 048
  6. BENZODIAZEPINES [Concomitant]
  7. VALPROATE SODIUM [Concomitant]
     Indication: SCHIZOPHRENIA
     Dosage: 900 MG DAY
     Route: 048
     Dates: start: 20070101
  8. CLOZARIL [Suspect]
     Indication: SCHIZOPHRENIA
     Dosage: 400 MG, UNK
     Route: 048
     Dates: start: 20061123, end: 20101001
  9. CLOZARIL [Suspect]
     Dosage: UNK UKN, UNK
     Route: 048
     Dates: start: 20120301

REACTIONS (12)
  - URINARY TRACT INFECTION [None]
  - INFLUENZA [None]
  - WHITE BLOOD CELL COUNT DECREASED [None]
  - THROMBOCYTOPENIA [None]
  - SELF INJURIOUS BEHAVIOUR [None]
  - NEUTROPENIA [None]
  - WHITE BLOOD CELL COUNT INCREASED [None]
  - NEUTROPHIL COUNT DECREASED [None]
  - SCHIZOPHRENIA [None]
  - MALAISE [None]
  - NEUTROPHIL COUNT INCREASED [None]
  - PLATELET COUNT DECREASED [None]
